FAERS Safety Report 11769710 (Version 2)
Quarter: 2015Q4

REPORT INFORMATION
  Report Type: Spontaneous
  Country: US (occurrence: US)
  Receive Date: 20151123
  Receipt Date: 20151124
  Transmission Date: 20160304
  Serious: Yes (Other)
  Sender: FDA-Public Use
  Company Number: US-SA-2015SA184450

PATIENT
  Sex: Female

DRUGS (2)
  1. NOVOLOG [Suspect]
     Active Substance: INSULIN ASPART
     Route: 065
  2. TOUJEO [Suspect]
     Active Substance: INSULIN GLARGINE
     Dosage: DOSE:50 UNIT(S)
     Route: 065
     Dates: start: 2015

REACTIONS (4)
  - Hepatic cirrhosis [Unknown]
  - Neuropathy peripheral [Unknown]
  - Nausea [Unknown]
  - Condition aggravated [Unknown]
